FAERS Safety Report 8783790 (Version 1)
Quarter: 2012Q4

REPORT INFORMATION
  Report Type: Spontaneous
  Country: US (occurrence: None)
  Receive Date: 20120906
  Receipt Date: 20120906
  Transmission Date: 20130627
  Serious: No
  Sender: FDA-Public Use
  Company Number: None

PATIENT
  Age: 90 Year
  Sex: Female

DRUGS (1)
  1. METOPROLOL TARTRATE [Suspect]
     Dosage: Duration: 1 to 2 weeks
Dose: 1
     Route: 048

REACTIONS (3)
  - Product substitution issue [None]
  - Myalgia [None]
  - Arthralgia [None]
